FAERS Safety Report 5844833-3 (Version None)
Quarter: 2008Q3

REPORT INFORMATION
  Report Type: 
  Country: None (occurrence: None)
  Receive Date: 20080814
  Receipt Date: 20080811
  Transmission Date: 20090109
  Serious: Yes (Hospitalization)
  Sender: FDA-Public Use
  Company Number: FR-BRISTOL-MYERS SQUIBB COMPANY-14040729

PATIENT
  Age: 46 Year
  Sex: Male

DRUGS (5)
  1. BLEOMYCIN SULFATE [Suspect]
     Indication: HODGKIN'S DISEASE
     Route: 042
     Dates: start: 19901020, end: 19901214
  2. VINBLASTINE SULFATE [Suspect]
     Indication: HODGKIN'S DISEASE
     Route: 042
     Dates: start: 19901020, end: 19901214
  3. DETICENE [Suspect]
     Indication: HODGKIN'S DISEASE
     Route: 042
     Dates: start: 19901020, end: 19901214
  4. ADRIBLASTINE [Suspect]
     Indication: HODGKIN'S DISEASE
     Route: 042
     Dates: start: 19901020, end: 19901214
  5. RADIOTHERAPY [Suspect]
     Indication: HODGKIN'S DISEASE

REACTIONS (2)
  - PNEUMONIA PNEUMOCOCCAL [None]
  - SARCOMA [None]
